FAERS Safety Report 11632423 (Version 1)
Quarter: 2015Q4

REPORT INFORMATION
  Report Type: Report from Study
  Country: JP (occurrence: JP)
  Receive Date: 20151015
  Receipt Date: 20151015
  Transmission Date: 20160304
  Serious: Yes (Other)
  Sender: FDA-Public Use
  Company Number: JP-SUN PHARMACEUTICAL INDUSTRIES LTD-2015RR-104435

PATIENT

DRUGS (4)
  1. OXALIPLATIN. [Suspect]
     Active Substance: OXALIPLATIN
     Indication: TESTICULAR CANCER METASTATIC
     Dosage: 130 MG/M2, AS A 2-H INFUSION ON DAY 1, 1 COURSE
     Route: 065
  2. GEMCITABINE [Suspect]
     Active Substance: GEMCITABINE\GEMCITABINE HYDROCHLORIDE
     Indication: TESTICULAR CANCER METASTATIC
     Dosage: 1.000 MG/M2, OVER 30 MIN ON DAYS 1 AND 8 OF A 3-WEEK CYCLE, 1 COURSE
     Route: 042
  3. 5-HYDROXYTRYPTAMINE-3 [Concomitant]
     Indication: PROPHYLAXIS OF NAUSEA AND VOMITING
     Route: 065
  4. DEXAMETHASONE. [Concomitant]
     Active Substance: DEXAMETHASONE
     Indication: PROPHYLAXIS OF NAUSEA AND VOMITING
     Route: 065

REACTIONS (1)
  - Hypersensitivity [Recovered/Resolved]
